FAERS Safety Report 25214215 (Version 2)
Quarter: 2025Q2

REPORT INFORMATION
  Report Type: Spontaneous
  Country: IN (occurrence: IN)
  Receive Date: 20250418
  Receipt Date: 20250623
  Transmission Date: 20250716
  Serious: Yes (Other)
  Sender: PFIZER
  Company Number: IN-PFIZER INC-PV202500019344

PATIENT
  Age: 56 Year
  Sex: Female
  Weight: 56.2 kg

DRUGS (4)
  1. LORLATINIB [Suspect]
     Active Substance: LORLATINIB
     Indication: Lung neoplasm malignant
     Route: 048
     Dates: start: 20250210
  2. LORLATINIB [Suspect]
     Active Substance: LORLATINIB
     Dosage: 50 MG, DAILY
     Route: 048
     Dates: start: 20250211
  3. LORLATINIB [Suspect]
     Active Substance: LORLATINIB
     Dosage: 75 MG, 1X/DAY (3 TABLETS OF 25MG DAILY X 15 DAYS)
     Route: 048
     Dates: start: 20250304
  4. LORLATINIB [Suspect]
     Active Substance: LORLATINIB
     Route: 048

REACTIONS (15)
  - Metastasis [Unknown]
  - Electrocardiogram QT prolonged [Unknown]
  - Hypertension [Unknown]
  - Blood cholesterol increased [Unknown]
  - Dyslipidaemia [Unknown]
  - Blood potassium increased [Unknown]
  - Glycosylated haemoglobin increased [Unknown]
  - Blood glucose increased [Unknown]
  - Blood creatinine decreased [Unknown]
  - Haemoglobin decreased [Unknown]
  - Weight increased [Unknown]
  - Peripheral swelling [Unknown]
  - Paraesthesia [Unknown]
  - Hypoaesthesia [Unknown]
  - Loss of personal independence in daily activities [Unknown]

NARRATIVE: CASE EVENT DATE: 20250304
